FAERS Safety Report 12219538 (Version 1)
Quarter: 2016Q1

REPORT INFORMATION
  Report Type: Spontaneous
  Country: US (occurrence: US)
  Receive Date: 20160329
  Receipt Date: 20160329
  Transmission Date: 20160526
  Serious: No
  Sender: FDA-Public Use
  Company Number: US-AMGEN-USASP2016036577

PATIENT
  Age: 61 Year
  Sex: Male
  Weight: 133.79 kg

DRUGS (1)
  1. ENBREL [Suspect]
     Active Substance: ETANERCEPT
     Indication: PRODUCT USED FOR UNKNOWN INDICATION
     Dosage: 50 MG, QWK
     Route: 058
     Dates: start: 201510

REACTIONS (2)
  - Injection site pain [Not Recovered/Not Resolved]
  - Injection site reaction [Not Recovered/Not Resolved]

NARRATIVE: CASE EVENT DATE: 201510
